FAERS Safety Report 15277303 (Version 3)
Quarter: 2018Q4

REPORT INFORMATION
  Report Type: Spontaneous
  Country: US (occurrence: US)
  Receive Date: 20180814
  Receipt Date: 20181108
  Transmission Date: 20190204
  Serious: No
  Sender: FDA-Public Use
  Company Number: US-PFIZER INC-2018327649

PATIENT
  Age: 72 Year
  Sex: Male

DRUGS (2)
  1. LYRICA [Suspect]
     Active Substance: PREGABALIN
     Dosage: 200 MG, 1X/DAY (CUTTING DOWN TO 1 A DAY)
  2. LYRICA [Suspect]
     Active Substance: PREGABALIN
     Dosage: 200 MG, 2X/DAY
     Route: 048

REACTIONS (6)
  - Intentional product misuse [Unknown]
  - Dizziness [Unknown]
  - Vomiting [Unknown]
  - Mobility decreased [Unknown]
  - Drug withdrawal syndrome [Unknown]
  - Nausea [Unknown]
